FAERS Safety Report 13469481 (Version 1)
Quarter: 2017Q2

REPORT INFORMATION
  Report Type: Spontaneous
  Country: US (occurrence: US)
  Receive Date: 20170421
  Receipt Date: 20170421
  Transmission Date: 20170830
  Serious: No
  Sender: FDA-Public Use
  Company Number: US-AMGEN-USASP2017058641

PATIENT
  Age: 34 Year
  Sex: Male

DRUGS (4)
  1. FISH OIL [Concomitant]
     Active Substance: FISH OIL
  2. ENBREL [Suspect]
     Active Substance: ETANERCEPT
     Indication: RHEUMATOID ARTHRITIS
     Dosage: 50 MG, QWK
     Route: 058
  3. CREATINE [Concomitant]
     Active Substance: CREATINE
  4. COQ10 [Concomitant]
     Active Substance: UBIDECARENONE

REACTIONS (5)
  - Fatigue [Unknown]
  - Asthenia [Unknown]
  - Alanine aminotransferase abnormal [Unknown]
  - Blood testosterone abnormal [Unknown]
  - Stress [Unknown]
